FAERS Safety Report 24855168 (Version 1)
Quarter: 2025Q1

REPORT INFORMATION
  Report Type: Spontaneous
  Country: US (occurrence: US)
  Receive Date: 20250117
  Receipt Date: 20250117
  Transmission Date: 20250408
  Serious: Yes (Other)
  Sender: CURRAX PHARMACEUTICALS
  Company Number: US-NALPROPION PHARMACEUTICALS INC.-2021-012082

PATIENT
  Age: 66 Year
  Sex: Female

DRUGS (1)
  1. CONTRAVE [Suspect]
     Active Substance: BUPROPION HYDROCHLORIDE\NALTREXONE HYDROCHLORIDE
     Indication: Weight control
     Route: 048
     Dates: start: 202012

REACTIONS (3)
  - Seizure [Unknown]
  - Blood pressure systolic increased [Unknown]
  - Product use complaint [Unknown]

NARRATIVE: CASE EVENT DATE: 20210111
